FAERS Safety Report 15979687 (Version 7)
Quarter: 2020Q1

REPORT INFORMATION
  Report Type: Spontaneous
  Country: FR (occurrence: FR)
  Receive Date: 20190219
  Receipt Date: 20200311
  Transmission Date: 20200409
  Serious: Yes (Hospitalization, Other)
  Sender: FDA-Public Use
  Company Number: FR-AUROBINDO-AUR-APL-2019-009666

PATIENT
  Age: 43 Year
  Sex: Female
  Weight: 51 kg

DRUGS (45)
  1. ADOPORT [Suspect]
     Active Substance: TACROLIMUS
     Dosage: 11 MILLIGRAM
     Route: 048
     Dates: start: 20181212
  2. ADOPORT [Suspect]
     Active Substance: TACROLIMUS
     Dosage: 5.5 MILLIGRAM
     Route: 048
     Dates: start: 20181213, end: 20181213
  3. ADOPORT [Suspect]
     Active Substance: TACROLIMUS
     Dosage: 10 MILLIGRAM
     Route: 048
     Dates: start: 20181216, end: 20181225
  4. ADOPORT [Suspect]
     Active Substance: TACROLIMUS
     Dosage: 5.5 MILLIGRAM
     Route: 048
     Dates: start: 20190924
  5. ADOPORT [Suspect]
     Active Substance: TACROLIMUS
     Dosage: 7.5 MILLIGRAM
     Route: 048
     Dates: start: 20190116, end: 20190215
  6. METHYLPREDNISOLONE. [Suspect]
     Active Substance: METHYLPREDNISOLONE
     Indication: IMMUNOSUPPRESSION
     Dosage: 250 MILLIGRAM PER LITRE
     Route: 065
     Dates: start: 20181211, end: 20190112
  7. BACTRIM [Concomitant]
     Active Substance: SULFAMETHOXAZOLE\TRIMETHOPRIM
     Indication: PNEUMOCYSTIS JIROVECII PNEUMONIA
     Dosage: 1 DOSAGE FORM
     Route: 065
     Dates: start: 20181211, end: 20190520
  8. LANSOPRAZOLE. [Concomitant]
     Active Substance: LANSOPRAZOLE
     Indication: PRODUCT USED FOR UNKNOWN INDICATION
     Dosage: UNK
     Route: 065
     Dates: start: 20181213
  9. VALGANCICLOVIR. [Suspect]
     Active Substance: VALGANCICLOVIR
     Dosage: 450 MILLIGRAM PER LITRE
     Route: 065
     Dates: start: 20181229, end: 20190304
  10. ADOPORT [Suspect]
     Active Substance: TACROLIMUS
     Indication: RENAL TRANSPLANT
     Dosage: 10 MILLIGRAM
     Route: 048
     Dates: start: 20181212
  11. ADOPORT [Suspect]
     Active Substance: TACROLIMUS
     Dosage: 9 MILLIGRAM
     Route: 048
     Dates: start: 20181212
  12. ADOPORT [Suspect]
     Active Substance: TACROLIMUS
     Dosage: 4.5 MILLIGRAM
     Route: 048
  13. ADOPORT [Suspect]
     Active Substance: TACROLIMUS
     Dosage: 4.5 MILLIGRAM
     Route: 048
     Dates: start: 20190328, end: 20190924
  14. ALFACALCIDOL [Concomitant]
     Active Substance: ALFACALCIDOL
     Indication: PRODUCT USED FOR UNKNOWN INDICATION
     Dosage: UNK
     Route: 065
     Dates: start: 20181213
  15. ADOPORT [Suspect]
     Active Substance: TACROLIMUS
     Dosage: 10 MILLIGRAM
     Route: 048
     Dates: start: 20181215, end: 20181224
  16. ADOPORT [Suspect]
     Active Substance: TACROLIMUS
     Dosage: 20 MILLIGRAM
     Route: 048
     Dates: start: 20181225, end: 20190107
  17. ADOPORT [Suspect]
     Active Substance: TACROLIMUS
     Dosage: 7.5 MILLIGRAM
     Route: 048
  18. ADOPORT [Suspect]
     Active Substance: TACROLIMUS
     Dosage: 7 MILLIGRAM
     Route: 048
     Dates: start: 20181214, end: 20181215
  19. BACTRIM [Concomitant]
     Active Substance: SULFAMETHOXAZOLE\TRIMETHOPRIM
     Dosage: UNK
     Route: 065
     Dates: start: 20181212
  20. PREDNISONE. [Concomitant]
     Active Substance: PREDNISONE
     Indication: PRODUCT USED FOR UNKNOWN INDICATION
     Dosage: UNK
     Route: 065
     Dates: start: 20190923
  21. ADOPORT [Suspect]
     Active Substance: TACROLIMUS
     Dosage: 9 MILLIGRAM
     Route: 048
     Dates: start: 20190104, end: 20190108
  22. ADOPORT [Suspect]
     Active Substance: TACROLIMUS
     Dosage: 7 MILLIGRAM
     Route: 048
     Dates: start: 20181214, end: 20181214
  23. ADOPORT [Suspect]
     Active Substance: TACROLIMUS
     Dosage: 5 MILLIGRAM
     Route: 048
  24. ADOPORT [Suspect]
     Active Substance: TACROLIMUS
     Dosage: 7.5 MILLIGRAM
     Route: 048
     Dates: start: 20190110, end: 20190112
  25. ADOPORT [Suspect]
     Active Substance: TACROLIMUS
     Dosage: 9 MILLIGRAM
     Route: 048
     Dates: start: 20181215, end: 20181216
  26. ADOPORT [Suspect]
     Active Substance: TACROLIMUS
     Dosage: 8.5 MILLIGRAM
     Route: 048
     Dates: start: 20190108, end: 20190110
  27. MYFORTIC [Suspect]
     Active Substance: MYCOPHENOLATE SODIUM
     Dosage: UNK
     Route: 065
     Dates: start: 20181212, end: 20181212
  28. ADOPORT [Suspect]
     Active Substance: TACROLIMUS
     Dosage: 6.5 MILLIGRAM
     Route: 048
     Dates: start: 20190215, end: 20190221
  29. ADOPORT [Suspect]
     Active Substance: TACROLIMUS
     Dosage: 7 MILLIGRAM
     Route: 048
     Dates: start: 20190112, end: 20190116
  30. ADOPORT [Suspect]
     Active Substance: TACROLIMUS
     Dosage: 5.5 MILLIGRAM
     Route: 048
     Dates: start: 20181213, end: 20181214
  31. MYFORTIC [Suspect]
     Active Substance: MYCOPHENOLATE SODIUM
     Indication: TRANSPLANT
     Dosage: 720 MILLIGRAM PER LITRE
     Route: 065
     Dates: start: 20181211, end: 20190214
  32. THYMOGLOBULINE [Suspect]
     Active Substance: LAPINE T-LYMPHOCYTE IMMUNE GLOBULIN
     Indication: IMMUNOSUPPRESSION
     Dosage: UNK
     Route: 065
     Dates: start: 20181211, end: 20181212
  33. EVEROLIMUS. [Concomitant]
     Active Substance: EVEROLIMUS
     Indication: PRODUCT USED FOR UNKNOWN INDICATION
     Dosage: 4.5 MILLIGRAM
     Route: 065
     Dates: start: 20190328
  34. CINACALCET. [Concomitant]
     Active Substance: CINACALCET
     Indication: PRODUCT USED FOR UNKNOWN INDICATION
     Dosage: UNK
     Route: 065
     Dates: start: 20181212
  35. VALGANCICLOVIR. [Concomitant]
     Active Substance: VALGANCICLOVIR
     Indication: PRODUCT USED FOR UNKNOWN INDICATION
     Dosage: UNK
     Route: 065
     Dates: start: 20181213
  36. ADOPORT [Suspect]
     Active Substance: TACROLIMUS
     Dosage: 5 MILLIGRAM
     Route: 048
     Dates: start: 20190321, end: 20190323
  37. ADOPORT [Suspect]
     Active Substance: TACROLIMUS
     Dosage: 7 MILLIGRAM
     Route: 048
     Dates: start: 20190221, end: 20190314
  38. ADOPORT [Suspect]
     Active Substance: TACROLIMUS
     Dosage: 11 MILLIGRAM
     Route: 048
     Dates: start: 20181225, end: 20190104
  39. SODIUM HYDROGEN CARBONATE [Concomitant]
     Active Substance: SODIUM BICARBONATE
     Indication: PRODUCT USED FOR UNKNOWN INDICATION
     Dosage: UNK
     Route: 065
     Dates: start: 20181212
  40. VALGANCICLOVIR. [Suspect]
     Active Substance: VALGANCICLOVIR
     Indication: PROPHYLAXIS
     Dosage: UNK
     Route: 065
     Dates: start: 20181213
  41. ADOPORT [Suspect]
     Active Substance: TACROLIMUS
     Dosage: 5.5 MILLIGRAM
     Route: 048
     Dates: start: 20181212, end: 20181212
  42. ADOPORT [Suspect]
     Active Substance: TACROLIMUS
     Dosage: 5 MILLIGRAM
     Route: 048
     Dates: start: 20181212, end: 20181213
  43. ADOPORT [Suspect]
     Active Substance: TACROLIMUS
     Dosage: 6 MILLIGRAM
     Route: 065
     Dates: start: 20190314, end: 20190321
  44. MYFORTIC [Suspect]
     Active Substance: MYCOPHENOLATE SODIUM
     Dosage: UNK
     Route: 065
     Dates: start: 20190104, end: 20190220
  45. SOLUPRED [Concomitant]
     Indication: PRODUCT USED FOR UNKNOWN INDICATION
     Dosage: UNK
     Route: 065
     Dates: start: 20190304

REACTIONS (17)
  - Thrombocytopenia [Recovered/Resolved]
  - Leukopenia [Recovered/Resolved]
  - Haemorrhagic ovarian cyst [Recovered/Resolved]
  - Mouth ulceration [Recovered/Resolved]
  - Hyperglycaemia [Recovered/Resolved]
  - White blood cell count increased [Recovered/Resolved]
  - Diarrhoea [Recovered/Resolved]
  - Overdose [Recovered/Resolved]
  - Neutrophil count increased [Recovered/Resolved]
  - Renal impairment [Recovered/Resolved]
  - Erythema [Recovered/Resolved]
  - Lymphopenia [Recovered/Resolved]
  - Anaemia [Recovering/Resolving]
  - Pulmonary embolism [Recovered/Resolved]
  - Hypophosphataemia [Recovered/Resolved]
  - Paraesthesia [Recovered/Resolved]
  - Phlebitis [Recovered/Resolved]

NARRATIVE: CASE EVENT DATE: 20181213
